FAERS Safety Report 14312366 (Version 1)
Quarter: 2017Q4

REPORT INFORMATION
  Report Type: Spontaneous
  Country: US (occurrence: US)
  Receive Date: 20171220
  Receipt Date: 20171220
  Transmission Date: 20180321
  Serious: No
  Sender: FDA-Public Use
  Company Number: None

PATIENT
  Sex: Female
  Weight: 108.86 kg

DRUGS (8)
  1. ENBREL [Suspect]
     Active Substance: ETANERCEPT
     Indication: RASH PAPULOSQUAMOUS
     Route: 058
     Dates: start: 201712
  2. ENBREL [Suspect]
     Active Substance: ETANERCEPT
     Indication: OSTEOPOROSIS
     Route: 058
     Dates: start: 201712
  3. OTEZLA [Suspect]
     Active Substance: APREMILAST
     Indication: OSTEOPOROSIS
     Route: 048
     Dates: start: 201504
  4. OTEZLA [Suspect]
     Active Substance: APREMILAST
     Indication: PSORIATIC ARTHROPATHY
     Route: 048
     Dates: start: 201504
  5. OTEZLA [Suspect]
     Active Substance: APREMILAST
     Indication: NEUROPATHY PERIPHERAL
     Route: 048
     Dates: start: 201504
  6. ENBREL [Suspect]
     Active Substance: ETANERCEPT
     Indication: PSORIATIC ARTHROPATHY
     Route: 058
     Dates: start: 201712
  7. OTEZLA [Suspect]
     Active Substance: APREMILAST
     Indication: RASH PAPULOSQUAMOUS
     Route: 048
     Dates: start: 201504
  8. ENBREL [Suspect]
     Active Substance: ETANERCEPT
     Indication: NEUROPATHY PERIPHERAL
     Route: 058
     Dates: start: 201712

REACTIONS (1)
  - Maternal exposure during pregnancy [None]
